FAERS Safety Report 10269938 (Version 1)
Quarter: 2014Q3

REPORT INFORMATION
  Report Type: Spontaneous
  Country: DE (occurrence: DE)
  Receive Date: 20140701
  Receipt Date: 20140701
  Transmission Date: 20150326
  Serious: Yes (Congenital Anomaly)
  Sender: FDA-Public Use
  Company Number: DE-MYLANLABS-2014S1014698

PATIENT
  Sex: Female
  Weight: 2.7 kg

DRUGS (3)
  1. RANITIDINE [Suspect]
     Active Substance: RANITIDINE\RANITIDINE HYDROCHLORIDE
     Indication: DYSPEPSIA
     Dosage: IF REQUIRED; DOSAGE UNKNOWN
     Route: 064
  2. PANTOPRAZOLE [Suspect]
     Active Substance: PANTOPRAZOLE SODIUM
     Indication: DYSPEPSIA
     Dosage: 20 [MG/D ]/ IF REQUIRED, ABOUT 3 TO 4 TIMES A WEEK
     Route: 064
     Dates: end: 20140115
  3. FOLIC ACID. [Concomitant]
     Active Substance: FOLIC ACID
     Indication: PROPHYLAXIS OF NEURAL TUBE DEFECT
     Dosage: 0.4 [MG/D ]
     Route: 064

REACTIONS (2)
  - Haemangioma congenital [Unknown]
  - Foetal exposure during pregnancy [Unknown]
